FAERS Safety Report 16361458 (Version 1)
Quarter: 2019Q3

REPORT INFORMATION
  Report Type: Spontaneous
  Country: US (occurrence: US)
  Receive Date: 20190524
  Receipt Date: 20190524
  Transmission Date: 20191004
  Serious: No
  Sender: FDA-Public Use
  Company Number: None

PATIENT
  Age: 50 Year
  Sex: Female
  Weight: 58.5 kg

DRUGS (4)
  1. TRANSDERM SCOP [Suspect]
     Active Substance: SCOPOLAMINE
     Indication: MOTION SICKNESS
     Dosage: ?          QUANTITY:1 PATCH(ES);OTHER FREQUENCY:EVERY 72 HOURS;?
     Route: 062
     Dates: start: 20190512, end: 20190518
  2. ALLEGRA [Concomitant]
     Active Substance: FEXOFENADINE HYDROCHLORIDE
  3. TUMERIC [Concomitant]
     Active Substance: HERBALS\TURMERIC
  4. LESSINA [Concomitant]
     Active Substance: ETHINYL ESTRADIOL\LEVONORGESTREL

REACTIONS (10)
  - Feeling abnormal [None]
  - Mydriasis [None]
  - Nausea [None]
  - Somnolence [None]
  - Dry mouth [None]
  - Apraxia [None]
  - Fatigue [None]
  - Confusional state [None]
  - Vision blurred [None]
  - Restlessness [None]

NARRATIVE: CASE EVENT DATE: 20190515
